FAERS Safety Report 8544286-0 (Version None)
Quarter: 2012Q3

REPORT INFORMATION
  Report Type: 
  Country: None (occurrence: None)
  Receive Date: 20120727
  Receipt Date: 20120723
  Transmission Date: 20120928
  Serious: Yes (Death)
  Sender: FDA-Public Use
  Company Number: US-PFIZER INC-2012138777

PATIENT
  Sex: Female

DRUGS (2)
  1. VFEND [Suspect]
     Indication: LUNG INFECTION
     Dosage: UNK
     Route: 048
     Dates: start: 20110929, end: 20120327
  2. VFEND [Suspect]
     Indication: FUNGAL INFECTION

REACTIONS (1)
  - RESPIRATORY FAILURE [None]
